FAERS Safety Report 5008507-3 (Version None)
Quarter: 2006Q2

REPORT INFORMATION
  Report Type: 
  Country: None (occurrence: None)
  Receive Date: 20060518
  Receipt Date: 20060509
  Transmission Date: 20061013
  Serious: Yes (Death)
  Sender: FDA-Public Use
  Company Number: 0600027US

PATIENT
  Age: 37 Year
  Sex: Female

DRUGS (9)
  1. FLUROMETHOLONE (FLUROMETHOLONE) [Suspect]
  2. DEXAMETHASONE/GENTAMICIN (DEXAMETHASONE/GENTAMICIN) [Suspect]
  3. ARTIFICIAL TEARS /00445101/ (HYPROMELLOSE) [Suspect]
  4. FUSINDIC ACID () [Suspect]
  5. GENTAMICIN [Suspect]
  6. EMEDASTINE (EMEDASTINE) [Suspect]
  7. OFLOXACINE A (OFLOXACIN) [Suspect]
  8. CHLORAMPHENICOL [Suspect]
  9. SALBUTAMOL (SALBUTAMOL) [Concomitant]

REACTIONS (2)
  - MALIGNANT NEOPLASM OF EYE [None]
  - MUCOEPIDERMOID CARCINOMA [None]
